FAERS Safety Report 13914839 (Version 1)
Quarter: 2017Q3

REPORT INFORMATION
  Report Type: Spontaneous
  Country: US (occurrence: None)
  Receive Date: 20170827
  Receipt Date: 20170827
  Transmission Date: 20171127
  Serious: Yes (Hospitalization)
  Sender: FDA-Public Use
  Company Number: None

PATIENT
  Age: 58 Year
  Sex: Female

DRUGS (12)
  1. ONDANSETRON [Concomitant]
     Active Substance: ONDANSETRON
  2. CLONIDINE. [Concomitant]
     Active Substance: CLONIDINE
  3. DRONABINOL. [Concomitant]
     Active Substance: DRONABINOL
  4. SCOPOLAMINE [Concomitant]
     Active Substance: SCOPOLAMINE
  5. TRANSDERM [Concomitant]
  6. FENTANYL. [Concomitant]
     Active Substance: FENTANYL
  7. LORAZEPAM. [Concomitant]
     Active Substance: LORAZEPAM
  8. HYDROMORPHON [Concomitant]
     Active Substance: HYDROMORPHONE
  9. PANTOPRAZOLE [Concomitant]
     Active Substance: PANTOPRAZOLE
  10. ALPRAZOLAM. [Concomitant]
     Active Substance: ALPRAZOLAM
  11. CAPECITABINE 500MG TEVA [Suspect]
     Active Substance: CAPECITABINE
     Indication: BRAIN NEOPLASM MALIGNANT
     Route: 048
     Dates: start: 20170727
  12. PROCHLORPER [Concomitant]

REACTIONS (2)
  - Ascites [None]
  - Vomiting [None]

NARRATIVE: CASE EVENT DATE: 20170823
